FAERS Safety Report 11251335 (Version 2)
Quarter: 2015Q3

REPORT INFORMATION
  Report Type: Spontaneous
  Country: US (occurrence: US)
  Receive Date: 20150708
  Receipt Date: 20150803
  Transmission Date: 20151125
  Serious: No
  Sender: FDA-Public Use
  Company Number: US-ELI_LILLY_AND_COMPANY-US201108002827

PATIENT
  Sex: Male
  Weight: 101.13 kg

DRUGS (10)
  1. CARBAMAZEPINE. [Concomitant]
     Active Substance: CARBAMAZEPINE
     Dosage: 400 MG, TID
  2. SEROQUEL [Concomitant]
     Active Substance: QUETIAPINE FUMARATE
     Dosage: 300 MG, UNKNOWN
  3. ZYPREXA [Concomitant]
     Active Substance: OLANZAPINE
     Dosage: 40 MG, UNKNOWN
  4. DISULFIRAM. [Concomitant]
     Active Substance: DISULFIRAM
     Dosage: 250 MG, EVERY OTHER DAY
  5. NALTREXONE [Concomitant]
     Active Substance: NALTREXONE
     Dosage: 50 MG, QD
  6. PROPANOLOL [Concomitant]
     Active Substance: PROPRANOLOL HYDROCHLORIDE
     Dosage: 20 MG, BID
  7. NICOTROL [Concomitant]
     Active Substance: NICOTINE
     Dosage: 10 MG, PRN
  8. CITALOPRAM [Concomitant]
     Active Substance: CITALOPRAM HYDROBROMIDE
     Dosage: 20 MG, UNKNOWN
  9. ZYPREXA RELPREVV [Suspect]
     Active Substance: OLANZAPINE PAMOATE
     Indication: SCHIZOPHRENIA
     Dosage: 300 MG, EVERY TWO WEEKS
     Route: 030
     Dates: start: 20110316
  10. BENZTROPINE [Concomitant]
     Active Substance: BENZTROPINE
     Dosage: 2 MG, BID

REACTIONS (2)
  - Hyponatraemia [Recovered/Resolved]
  - Fatigue [Recovered/Resolved]

NARRATIVE: CASE EVENT DATE: 20110720
